FAERS Safety Report 26135895 (Version 1)
Quarter: 2025Q4

REPORT INFORMATION
  Report Type: Spontaneous
  Country: TW (occurrence: TW)
  Receive Date: 20251209
  Receipt Date: 20251209
  Transmission Date: 20260117
  Serious: Yes (Death)
  Sender: PFIZER
  Company Number: TW-PFIZER INC-202500239006

PATIENT
  Age: 89 Year
  Sex: Male

DRUGS (3)
  1. PIPERACILLIN SODIUM\TAZOBACTAM SODIUM [Suspect]
     Active Substance: PIPERACILLIN SODIUM\TAZOBACTAM SODIUM
     Indication: Pneumonia
     Dosage: UNK
  2. TEICOPLANIN [Suspect]
     Active Substance: TEICOPLANIN
     Indication: Pneumonia
     Dosage: UNK
  3. MEROPENEM [Concomitant]
     Active Substance: MEROPENEM
     Indication: Pneumonia
     Dosage: UNK

REACTIONS (1)
  - Stevens-Johnson syndrome [Fatal]
